FAERS Safety Report 6203384-7 (Version None)
Quarter: 2009Q2

REPORT INFORMATION
  Report Type: 
  Country: None (occurrence: None)
  Receive Date: 20090527
  Receipt Date: 20090518
  Transmission Date: 20091009
  Serious: Yes (Other)
  Sender: FDA-Public Use
  Company Number: AU-AVENTIS-200913276GDDC

PATIENT
  Age: 62 Year

DRUGS (6)
  1. ARAVA [Suspect]
     Indication: RHEUMATOID ARTHRITIS
     Route: 048
     Dates: start: 20070816, end: 20090319
  2. AVAPRO [Suspect]
     Indication: HYPERTENSION
     Dosage: DOSE: UNK
     Route: 048
     Dates: start: 20040101
  3. NEXIUM [Concomitant]
     Dosage: DOSE: UNK
  4. ZANTAC [Concomitant]
     Dosage: DOSE: UNK
  5. NORVASC [Concomitant]
     Indication: HYPERTENSION
     Dosage: DOSE: UNK
  6. LIPITOR [Concomitant]
     Route: 048

REACTIONS (1)
  - PEMPHIGUS [None]
